FAERS Safety Report 16742938 (Version 1)
Quarter: 2019Q3

REPORT INFORMATION
  Report Type: Spontaneous
  Country: US (occurrence: US)
  Receive Date: 20190827
  Receipt Date: 20190827
  Transmission Date: 20191005
  Serious: No
  Sender: FDA-Public Use
  Company Number: US-ACCORD-149495

PATIENT

DRUGS (1)
  1. EPTIFIBATIDE ACCORD [Suspect]
     Active Substance: EPTIFIBATIDE
     Indication: PRODUCT USED FOR UNKNOWN INDICATION
     Dates: start: 20190714

REACTIONS (2)
  - Wrong technique in product usage process [Unknown]
  - Product supply issue [Unknown]
